FAERS Safety Report 4535882-6 (Version None)
Quarter: 2004Q4

REPORT INFORMATION
  Report Type: 
  Country: None (occurrence: None)
  Receive Date: 20041223
  Receipt Date: 20041215
  Transmission Date: 20050328
  Serious: Yes (Other)
  Sender: FDA-Public Use
  Company Number: PHBS2004DE16912

PATIENT
  Age: 34 Year
  Sex: Male

DRUGS (6)
  1. MYCOPHENOLATE MOFETIL [Suspect]
     Indication: RENAL TRANSPLANT
  2. PREDNISOLONE [Suspect]
     Indication: RENAL TRANSPLANT
  3. EPOGEN [Concomitant]
  4. TACROLIMUS [Suspect]
     Indication: RENAL TRANSPLANT
  5. IMMUNE GLOBULIN INTRAVENOUS (HUMAN) [Concomitant]
     Route: 042
  6. CYCLOSPORINE [Suspect]
     Indication: RENAL TRANSPLANT
     Route: 065
     Dates: start: 20010801

REACTIONS (6)
  - APLASIA PURE RED CELL [None]
  - DIARRHOEA [None]
  - ERYTHEMA INFECTIOSUM [None]
  - HAEMOGLOBIN DECREASED [None]
  - KIDNEY TRANSPLANT REJECTION [None]
  - RETICULOCYTOPENIA [None]
